FAERS Safety Report 15147630 (Version 3)
Quarter: 2019Q2

REPORT INFORMATION
  Report Type: Spontaneous
  Country: US (occurrence: US)
  Receive Date: 20180716
  Receipt Date: 20190502
  Transmission Date: 20190711
  Serious: No
  Sender: FDA-Public Use
  Company Number: US-PFIZER INC-2018283510

PATIENT
  Age: 81 Year
  Sex: Female

DRUGS (4)
  1. IBRANCE [Suspect]
     Active Substance: PALBOCICLIB
     Dosage: 75 MG, CYCLIC (FOR 21 DAYS, REST 7 DAYS THEN REPEAT)
     Route: 048
     Dates: start: 20180420, end: 20180521
  2. IBRANCE [Suspect]
     Active Substance: PALBOCICLIB
     Indication: BREAST CANCER METASTATIC
     Dosage: 125 MG, UNK
     Route: 048
  3. IBRANCE [Suspect]
     Active Substance: PALBOCICLIB
     Dosage: 75 MG, CYCLIC (TAKE 1 CAPSULE BY MOUTH DAILY 21 DAYS ON AND 1 WEEK OFF)
     Route: 048
     Dates: start: 20180406, end: 201804
  4. IBRANCE [Suspect]
     Active Substance: PALBOCICLIB
     Dosage: 75 MG, CYCLIC (FOR 21 DAYS, REST 7 DAYS THEN REPEAT)
     Route: 048
     Dates: start: 2018, end: 20181105

REACTIONS (9)
  - Skin atrophy [Unknown]
  - Pain [Unknown]
  - Alopecia [Unknown]
  - Platelet count decreased [Unknown]
  - Asthenia [Unknown]
  - Epistaxis [Recovered/Resolved]
  - Skin haemorrhage [Recovered/Resolved]
  - Dry skin [Unknown]
  - Arthralgia [Unknown]

NARRATIVE: CASE EVENT DATE: 20180710
